FAERS Safety Report 10689494 (Version 2)
Quarter: 2015Q1

REPORT INFORMATION
  Report Type: Spontaneous
  Country: US (occurrence: US)
  Receive Date: 20150105
  Receipt Date: 20150119
  Transmission Date: 20150720
  Serious: No
  Sender: FDA-Public Use
  Company Number: US-BIOGENIDEC-2015BI000195

PATIENT
  Age: 65 Year
  Sex: Male

DRUGS (8)
  1. THYROID [Concomitant]
     Active Substance: LEVOTHYROXINE\LIOTHYRONINE
  2. TECFIDERA [Suspect]
     Active Substance: DIMETHYL FUMARATE
     Indication: MULTIPLE SCLEROSIS
     Route: 048
     Dates: start: 20141226
  3. TAMSULOSIN HCL [Concomitant]
     Active Substance: TAMSULOSIN
  4. FLOMAX [Concomitant]
     Active Substance: TAMSULOSIN HYDROCHLORIDE
  5. TEGRETOL [Concomitant]
     Active Substance: CARBAMAZEPINE
  6. NAMENDA [Concomitant]
     Active Substance: MEMANTINE HYDROCHLORIDE
  7. CARBAMEZAPINE [Concomitant]
     Active Substance: CARBAMAZEPINE
  8. ZOLOFT [Concomitant]
     Active Substance: SERTRALINE HYDROCHLORIDE

REACTIONS (5)
  - Off label use [Unknown]
  - Headache [Unknown]
  - Flushing [Unknown]
  - Cough [Unknown]
  - Nasopharyngitis [Unknown]
